FAERS Safety Report 24840460 (Version 1)
Quarter: 2025Q1

REPORT INFORMATION
  Report Type: Spontaneous
  Country: GB (occurrence: GB)
  Receive Date: 20250114
  Receipt Date: 20250114
  Transmission Date: 20250409
  Serious: Yes (Other)
  Sender: INSUD PHARMA
  Company Number: GB-MHRA-34364585

PATIENT

DRUGS (1)
  1. LANSOPRAZOLE [Suspect]
     Active Substance: LANSOPRAZOLE
     Indication: Product used for unknown indication
     Route: 065
     Dates: start: 202404

REACTIONS (2)
  - Large intestinal ulcer [Recovered/Resolved]
  - Frequent bowel movements [Recovered/Resolved]
